FAERS Safety Report 6701255-0 (Version None)
Quarter: 2010Q2

REPORT INFORMATION
  Report Type: 
  Country: None (occurrence: None)
  Receive Date: 20100427
  Receipt Date: 20100419
  Transmission Date: 20101027
  Serious: Yes (Hospitalization)
  Sender: FDA-Public Use
  Company Number: 1000007927

PATIENT
  Age: 86 Year
  Sex: Female

DRUGS (13)
  1. NEBIVOLOL HCL [Suspect]
     Dosage: ORAL
     Route: 048
  2. LEVOTHYROXINE SODIUM [Suspect]
  3. ATACAND [Suspect]
     Dosage: ORAL
     Route: 048
     Dates: end: 20090622
  4. OFLOCET [Suspect]
     Indication: BACTERAEMIA
     Dosage: 400 MG (200 MG, 2 IN 1 D), ORAL
     Route: 048
     Dates: start: 20090610, end: 20090625
  5. RIFADIN [Suspect]
     Indication: BACTERAEMIA
     Dosage: 1200 MG (300 MG, 4 IN 1 D), ORAL
     Route: 048
     Dates: start: 20090610, end: 20090625
  6. IXPRIM [Suspect]
     Dosage: ORAL
     Route: 048
  7. DIFFU-K [Concomitant]
  8. DIGOXIN [Concomitant]
  9. PREVISCAN [Concomitant]
  10. LORAZEPAM [Concomitant]
  11. ODRIK [Concomitant]
  12. ALDACTONE [Concomitant]
  13. CORDARONE [Concomitant]

REACTIONS (4)
  - ANAEMIA HAEMOLYTIC AUTOIMMUNE [None]
  - EPISTAXIS [None]
  - HAEMORRHAGIC ANAEMIA [None]
  - HAPTOGLOBIN ABNORMAL [None]
